FAERS Safety Report 19502319 (Version 1)
Quarter: 2021Q3

REPORT INFORMATION
  Report Type: Spontaneous
  Country: US (occurrence: US)
  Receive Date: 20210707
  Receipt Date: 20210707
  Transmission Date: 20211014
  Serious: No
  Sender: FDA-Public Use
  Company Number: US-BAYER-2021-170796

PATIENT
  Age: 90 Year
  Sex: Female

DRUGS (1)
  1. ALEVE [Suspect]
     Active Substance: NAPROXEN SODIUM
     Dosage: 1 IN THE MORNING, 1 AT NIGHT
     Route: 048

REACTIONS (2)
  - Drug ineffective [Unknown]
  - Dizziness [Not Recovered/Not Resolved]
